FAERS Safety Report 15620084 (Version 2)
Quarter: 2019Q1

REPORT INFORMATION
  Report Type: Report from Study
  Country: US (occurrence: US)
  Receive Date: 20181115
  Receipt Date: 20190131
  Transmission Date: 20190417
  Serious: Yes (Death, Life-Threatening, Hospitalization, Other)
  Sender: FDA-Public Use
  Company Number: US-ROCHE-2030166

PATIENT
  Age: 53 Year
  Sex: Female
  Weight: 63.2 kg

DRUGS (17)
  1. BEVACIZUMAB. [Suspect]
     Active Substance: BEVACIZUMAB
     Indication: CERVIX CANCER METASTATIC
     Dosage: OVER 90 MINUTES ON DAY 1?RECEIVED THE LAST DOSES OF BEVACIZUMAB ON 30/OCT/2017 (CYCLE 1, DAY 1).
     Route: 042
     Dates: start: 20171030, end: 20171030
  2. BEVACIZUMAB. [Suspect]
     Active Substance: BEVACIZUMAB
     Route: 042
     Dates: start: 201702, end: 201708
  3. ATEZOLIZUMAB. [Suspect]
     Active Substance: ATEZOLIZUMAB
     Indication: CERVIX CANCER METASTATIC
     Dosage: OVER 60 MINUTES ON DAY 1?RECEIVED THE LAST DOSES OF ATEZOLIZUMAB ON 30/OCT/2017 (CYCLE 1, DAY 1).
     Route: 042
     Dates: start: 20171030, end: 20171030
  4. MS CONTIN [Concomitant]
     Active Substance: MORPHINE SULFATE
  5. SENNA [Concomitant]
     Active Substance: SENNA LEAF\SENNOSIDES\SENNOSIDES A AND B
  6. GEMCITABINE HYDROCHLORIDE. [Concomitant]
     Active Substance: GEMCITABINE HYDROCHLORIDE
     Route: 065
     Dates: start: 201702, end: 201708
  7. ACETAMINOPHEN. [Concomitant]
     Active Substance: ACETAMINOPHEN
  8. LACTULOSE. [Concomitant]
     Active Substance: LACTULOSE
  9. POLYETHYLENE GLYCOL [Concomitant]
     Active Substance: POLYETHYLENE GLYCOLS
  10. OLANZAPINE. [Concomitant]
     Active Substance: OLANZAPINE
  11. FENTANYL. [Concomitant]
     Active Substance: FENTANYL
  12. ONDANSETRON [Concomitant]
     Active Substance: ONDANSETRON
  13. CISPLATIN. [Concomitant]
     Active Substance: CISPLATIN
     Route: 065
     Dates: start: 201702, end: 201708
  14. MIRTAZAPINE. [Concomitant]
     Active Substance: MIRTAZAPINE
  15. AMLODIPINE [Concomitant]
     Active Substance: AMLODIPINE BESYLATE
  16. MSIR [Concomitant]
     Active Substance: MORPHINE SULFATE
  17. CISPLATIN. [Concomitant]
     Active Substance: CISPLATIN
     Route: 065
     Dates: start: 201504, end: 201507

REACTIONS (7)
  - Anaemia [Unknown]
  - Decreased appetite [Unknown]
  - Meningitis [Recovered/Resolved]
  - Encephalopathy [Recovered/Resolved]
  - Disease progression [Fatal]
  - Respiratory failure [Recovered/Resolved]
  - Sepsis [Unknown]

NARRATIVE: CASE EVENT DATE: 20171113
